FAERS Safety Report 15493367 (Version 5)
Quarter: 2021Q2

REPORT INFORMATION
  Report Type: Report from Study
  Country: JP (occurrence: JP)
  Receive Date: 20181012
  Receipt Date: 20210415
  Transmission Date: 20210716
  Serious: Yes (Other)
  Sender: FDA-Public Use
  Company Number: JP-JNJFOC-20181009002

PATIENT
  Age: 63 Year
  Sex: Male
  Weight: 71.6 kg

DRUGS (54)
  1. SIMPONI [Suspect]
     Active Substance: GOLIMUMAB
     Dosage: 4 WEEKS AFTER SECOND DOSE
     Route: 058
     Dates: start: 20180418, end: 20180418
  2. SIMPONI [Suspect]
     Active Substance: GOLIMUMAB
     Dosage: 4 WEEKS AFTER SECOND DOSE
     Route: 058
     Dates: start: 20180905, end: 20180905
  3. SIMPONI [Suspect]
     Active Substance: GOLIMUMAB
     Dosage: 4 WEEKS AFTER SECOND DOSE
     Route: 058
     Dates: start: 20181003, end: 20181003
  4. SIMPONI [Suspect]
     Active Substance: GOLIMUMAB
     Dosage: 4 WEEKS AFTER SECOND DOSE
     Route: 058
     Dates: start: 20181029, end: 20181029
  5. SIMPONI [Suspect]
     Active Substance: GOLIMUMAB
     Dosage: 4 WEEKS AFTER SECOND DOSE
     Route: 058
     Dates: start: 20181129, end: 20181129
  6. SIMPONI [Suspect]
     Active Substance: GOLIMUMAB
     Dosage: 4 WEEKS AFTER SECOND DOSE
     Route: 058
     Dates: start: 20190407, end: 20190407
  7. SIMPONI [Suspect]
     Active Substance: GOLIMUMAB
     Dosage: 4 WEEKS AFTER SECOND DOSE
     Route: 058
     Dates: start: 20200415, end: 20200415
  8. SIMPONI [Suspect]
     Active Substance: GOLIMUMAB
     Route: 058
     Dates: start: 20200930, end: 20200930
  9. SIMPONI [Suspect]
     Active Substance: GOLIMUMAB
     Route: 058
     Dates: start: 20201223, end: 20201223
  10. PREDONINE [Suspect]
     Active Substance: PREDNISOLONE
     Indication: COLITIS ULCERATIVE
     Route: 048
     Dates: start: 20180131, end: 20180212
  11. PREDONINE [Suspect]
     Active Substance: PREDNISOLONE
     Route: 048
     Dates: start: 20180407, end: 20180414
  12. SIMPONI [Suspect]
     Active Substance: GOLIMUMAB
     Route: 058
     Dates: start: 20200805, end: 20200805
  13. SIMPONI [Suspect]
     Active Substance: GOLIMUMAB
     Route: 058
     Dates: start: 20200902, end: 20200902
  14. PREDONINE [Suspect]
     Active Substance: PREDNISOLONE
     Route: 048
     Dates: start: 20180213, end: 20180226
  15. PREDONINE [Suspect]
     Active Substance: PREDNISOLONE
     Route: 048
     Dates: start: 20180316, end: 20180323
  16. MIYA?BM [Concomitant]
     Active Substance: CLOSTRIDIUM BUTYRICUM SPORES STRAIN M-55
     Indication: COLITIS ULCERATIVE
     Route: 048
  17. SIMPONI [Suspect]
     Active Substance: GOLIMUMAB
     Dosage: 4 WEEKS AFTER SECOND DOSE
     Route: 058
     Dates: start: 20181226, end: 20181226
  18. SIMPONI [Suspect]
     Active Substance: GOLIMUMAB
     Dosage: 4 WEEKS AFTER SECOND DOSE
     Route: 058
     Dates: start: 20191002, end: 20191002
  19. SIMPONI [Suspect]
     Active Substance: GOLIMUMAB
     Dosage: 4 WEEKS AFTER SECOND DOSE
     Route: 058
     Dates: start: 20191225, end: 20191225
  20. SIMPONI [Suspect]
     Active Substance: GOLIMUMAB
     Route: 058
     Dates: start: 20200513, end: 20200513
  21. SIMPONI [Suspect]
     Active Substance: GOLIMUMAB
     Route: 058
     Dates: start: 20201028, end: 20201028
  22. SIMPONI [Suspect]
     Active Substance: GOLIMUMAB
     Dosage: 4 WEEKS AFTER SECOND DOSE
     Route: 058
     Dates: start: 20180516, end: 20180516
  23. SIMPONI [Suspect]
     Active Substance: GOLIMUMAB
     Dosage: 4 WEEKS AFTER SECOND DOSE
     Route: 058
     Dates: start: 20180711, end: 20180711
  24. SIMPONI [Suspect]
     Active Substance: GOLIMUMAB
     Route: 058
     Dates: start: 20200610, end: 20200610
  25. PREDONINE [Suspect]
     Active Substance: PREDNISOLONE
     Route: 048
     Dates: start: 201804, end: 20180428
  26. MIYA?BM [Concomitant]
     Active Substance: CLOSTRIDIUM BUTYRICUM SPORES STRAIN M-55
     Route: 048
  27. SIMPONI [Suspect]
     Active Substance: GOLIMUMAB
     Indication: COLITIS ULCERATIVE
     Dosage: INITIAL DOSE
     Route: 058
     Dates: start: 20180302, end: 20180302
  28. SIMPONI [Suspect]
     Active Substance: GOLIMUMAB
     Dosage: 4 WEEKS AFTER SECOND DOSE
     Route: 058
     Dates: start: 20180613, end: 20180613
  29. SIMPONI [Suspect]
     Active Substance: GOLIMUMAB
     Dosage: 4 WEEKS AFTER SECOND DOSE
     Route: 058
     Dates: start: 20190515, end: 20190515
  30. SIMPONI [Suspect]
     Active Substance: GOLIMUMAB
     Dosage: 4 WEEKS AFTER SECOND DOSE
     Route: 058
     Dates: start: 20190612, end: 20190612
  31. SIMPONI [Suspect]
     Active Substance: GOLIMUMAB
     Route: 058
     Dates: start: 20201120, end: 20201120
  32. SIMPONI [Suspect]
     Active Substance: GOLIMUMAB
     Route: 058
     Dates: start: 20210120, end: 20210120
  33. SIMPONI [Suspect]
     Active Substance: GOLIMUMAB
     Route: 058
     Dates: start: 20210217, end: 20210217
  34. PREDONINE [Suspect]
     Active Substance: PREDNISOLONE
     Route: 048
     Dates: start: 20180308, end: 20180315
  35. LIALDA [Concomitant]
     Active Substance: MESALAMINE
     Indication: COLITIS ULCERATIVE
     Route: 048
  36. SIMPONI [Suspect]
     Active Substance: GOLIMUMAB
     Dosage: 4 WEEKS AFTER SECOND DOSE
     Route: 058
     Dates: start: 20190123, end: 20190123
  37. SIMPONI [Suspect]
     Active Substance: GOLIMUMAB
     Dosage: 4 WEEKS AFTER SECOND DOSE
     Route: 058
     Dates: start: 20190220, end: 20190220
  38. SIMPONI [Suspect]
     Active Substance: GOLIMUMAB
     Dosage: 4 WEEKS AFTER SECOND DOSE
     Route: 058
     Dates: start: 20190710, end: 20190710
  39. SIMPONI [Suspect]
     Active Substance: GOLIMUMAB
     Dosage: 4 WEEKS AFTER SECOND DOSE
     Route: 058
     Dates: start: 20191030, end: 20191030
  40. SIMPONI [Suspect]
     Active Substance: GOLIMUMAB
     Route: 058
     Dates: start: 20200708, end: 20200708
  41. PREDONINE [Suspect]
     Active Substance: PREDNISOLONE
     Route: 048
     Dates: start: 20180227, end: 20180307
  42. PREDONINE [Suspect]
     Active Substance: PREDNISOLONE
     Route: 048
     Dates: start: 20180415, end: 20180418
  43. VICCLOX                            /00587301/ [Concomitant]
     Active Substance: ACYCLOVIR SODIUM
     Indication: HERPES ZOSTER
     Route: 065
     Dates: start: 20180328, end: 20180404
  44. SIMPONI [Suspect]
     Active Substance: GOLIMUMAB
     Dosage: 2 WEEKS AFTER INITIAL DOSE
     Route: 058
     Dates: start: 20180316, end: 20180316
  45. SIMPONI [Suspect]
     Active Substance: GOLIMUMAB
     Dosage: 4 WEEKS AFTER SECOND DOSE
     Route: 058
     Dates: start: 20190904, end: 20190904
  46. SIMPONI [Suspect]
     Active Substance: GOLIMUMAB
     Dosage: 4 WEEKS AFTER SECOND DOSE
     Route: 058
     Dates: start: 20200318, end: 20200318
  47. SIMPONI [Suspect]
     Active Substance: GOLIMUMAB
     Route: 058
     Dates: start: 20210307, end: 20210307
  48. PREDONINE [Suspect]
     Active Substance: PREDNISOLONE
     Route: 048
     Dates: start: 20180324, end: 20180330
  49. SIMPONI [Suspect]
     Active Substance: GOLIMUMAB
     Dosage: 4 WEEKS AFTER SECOND DOSE
     Route: 058
     Dates: start: 20180808, end: 20180808
  50. SIMPONI [Suspect]
     Active Substance: GOLIMUMAB
     Dosage: 4 WEEKS AFTER SECOND DOSE
     Route: 058
     Dates: start: 20190320, end: 20190320
  51. SIMPONI [Suspect]
     Active Substance: GOLIMUMAB
     Dosage: 4 WEEKS AFTER SECOND DOSE
     Route: 058
     Dates: start: 20190807, end: 20190807
  52. SIMPONI [Suspect]
     Active Substance: GOLIMUMAB
     Dosage: 4 WEEKS AFTER SECOND DOSE
     Route: 058
     Dates: start: 20191127, end: 20191127
  53. SIMPONI [Suspect]
     Active Substance: GOLIMUMAB
     Dosage: 4 WEEKS AFTER SECOND DOSE
     Route: 058
     Dates: start: 20200122, end: 20200122
  54. PREDONINE [Suspect]
     Active Substance: PREDNISOLONE
     Route: 048
     Dates: start: 20180331, end: 20180406

REACTIONS (1)
  - Herpes zoster [Recovering/Resolving]

NARRATIVE: CASE EVENT DATE: 20180323
